FAERS Safety Report 5311539-9 (Version None)
Quarter: 2007Q2

REPORT INFORMATION
  Report Type: 
  Country: None (occurrence: None)
  Receive Date: 20070430
  Receipt Date: 20070423
  Transmission Date: 20071010
  Serious: Yes (Hospitalization)
  Sender: FDA-Public Use
  Company Number: FR-GLAXOSMITHKLINE-B0467737A

PATIENT
  Age: 14 Year
  Sex: Male
  Weight: 80 kg

DRUGS (1)
  1. LAMICTAL [Suspect]
     Indication: EPILEPSY
     Dosage: 200MG PER DAY
     Route: 048
     Dates: start: 20070301, end: 20070410

REACTIONS (19)
  - BLOOD LACTATE DEHYDROGENASE INCREASED [None]
  - BLOOD TRIGLYCERIDES INCREASED [None]
  - CONJUNCTIVITIS [None]
  - DIARRHOEA [None]
  - EOSINOPHILIA [None]
  - HYPERSENSITIVITY [None]
  - HYPOALBUMINAEMIA [None]
  - LYMPHADENOPATHY [None]
  - LYMPHOCYTE COUNT INCREASED [None]
  - MONOCYTE COUNT INCREASED [None]
  - OEDEMA [None]
  - ORAL SOFT TISSUE DISORDER [None]
  - PARONYCHIA [None]
  - PSEUDOLYMPHOMA [None]
  - PYREXIA [None]
  - RASH ERYTHEMATOUS [None]
  - STAPHYLOCOCCAL INFECTION [None]
  - TRANSAMINASES INCREASED [None]
  - WEIGHT INCREASED [None]
